FAERS Safety Report 11573922 (Version 1)
Quarter: 2015Q3

REPORT INFORMATION
  Report Type: Spontaneous
  Country: GB (occurrence: GB)
  Receive Date: 20150930
  Receipt Date: 20150930
  Transmission Date: 20151125
  Serious: Yes (Other)
  Sender: FDA-Public Use
  Company Number: GB-CIPLA LTD.-2015GB07680

PATIENT

DRUGS (4)
  1. CODEINE [Concomitant]
     Active Substance: CODEINE
     Route: 065
  2. OMEPRAZOLE. [Concomitant]
     Active Substance: OMEPRAZOLE
     Route: 065
  3. PARACETAMOL [Concomitant]
     Active Substance: ACETAMINOPHEN
     Route: 065
  4. AMLODIPINE [Suspect]
     Active Substance: AMLODIPINE BESYLATE
     Indication: HYPERTENSION
     Dosage: 5 MG, UNK
     Route: 048
     Dates: start: 20150729, end: 20150828

REACTIONS (8)
  - Dyspnoea [Recovering/Resolving]
  - Nocturia [Recovering/Resolving]
  - Mood altered [Recovering/Resolving]
  - Back pain [Recovering/Resolving]
  - Pruritus [Recovering/Resolving]
  - Sleep disorder [Recovering/Resolving]
  - Muscle spasms [Recovering/Resolving]
  - Burning sensation [Recovering/Resolving]

NARRATIVE: CASE EVENT DATE: 20150801
